FAERS Safety Report 7301640-2 (Version None)
Quarter: 2011Q1

REPORT INFORMATION
  Report Type: 
  Country: None (occurrence: None)
  Receive Date: 20110218
  Receipt Date: 20110207
  Transmission Date: 20110831
  Serious: Yes (Hospitalization)
  Sender: FDA-Public Use
  Company Number: GB-SANOFI-AVENTIS-2011SA007878

PATIENT
  Age: 47 Year
  Sex: Female

DRUGS (2)
  1. DOCETAXEL [Suspect]
     Route: 065
  2. TRASTUZUMAB [Suspect]
     Route: 065

REACTIONS (11)
  - THROMBOCYTOPENIA [None]
  - THROMBOTIC MICROANGIOPATHY [None]
  - BLOOD CREATININE INCREASED [None]
  - CONFUSIONAL STATE [None]
  - MUSCULAR WEAKNESS [None]
  - HYPERREFLEXIA [None]
  - NORMOCHROMIC NORMOCYTIC ANAEMIA [None]
  - DEPRESSED LEVEL OF CONSCIOUSNESS [None]
  - ATAXIA [None]
  - HYPERBILIRUBINAEMIA [None]
  - HYPERTONIA [None]
